FAERS Safety Report 4674929-3 (Version None)
Quarter: 2005Q2

REPORT INFORMATION
  Report Type: 
  Country: None (occurrence: None)
  Receive Date: 20050525
  Receipt Date: 20050413
  Transmission Date: 20051028
  Serious: Yes (Other)
  Sender: FDA-Public Use
  Company Number: 2005060682

PATIENT
  Age: 52 Year
  Sex: Female

DRUGS (2)
  1. BEXTRA [Suspect]
     Indication: ILL-DEFINED DISORDER
     Dosage: 20 MG (10 MG, 2 IN 1 D)
     Dates: start: 20041001
  2. PREDNISONE [Suspect]
     Indication: HYPERSENSITIVITY

REACTIONS (7)
  - DRUG HYPERSENSITIVITY [None]
  - HEADACHE [None]
  - IMPAIRED WORK ABILITY [None]
  - MOVEMENT DISORDER [None]
  - PAIN [None]
  - PITYRIASIS ROSEA [None]
  - POLLAKIURIA [None]
